FAERS Safety Report 6930330-0 (Version None)
Quarter: 2010Q3

REPORT INFORMATION
  Report Type: 
  Country: None (occurrence: None)
  Receive Date: 20100818
  Receipt Date: 20100810
  Transmission Date: 20110219
  Serious: Yes (Hospitalization, Other)
  Sender: FDA-Public Use
  Company Number: US-ROCHE-720322

PATIENT
  Sex: Female

DRUGS (4)
  1. PEGASYS [Suspect]
     Indication: HEPATITIS C
     Dosage: WAS OFF MEDICATION FOR ONE MONTH IN JUNE
     Route: 065
     Dates: start: 20100210
  2. PEGASYS [Suspect]
     Route: 065
     Dates: start: 20100701
  3. RIBASPHERE [Suspect]
     Indication: HEPATITIS C
     Dosage: WAS OFF MEDICATION FOR ONE MONTH IN JUNE
     Route: 065
     Dates: start: 20100210
  4. RIBASPHERE [Suspect]
     Route: 065
     Dates: start: 20100701

REACTIONS (9)
  - GALLBLADDER INJURY [None]
  - HEADACHE [None]
  - MALAISE [None]
  - MEMORY IMPAIRMENT [None]
  - PAIN [None]
  - RASH MACULAR [None]
  - RED BLOOD CELL COUNT DECREASED [None]
  - SPLENIC INJURY [None]
  - WHITE BLOOD CELL COUNT DECREASED [None]
